FAERS Safety Report 21408328 (Version 1)
Quarter: 2022Q4

REPORT INFORMATION
  Report Type: Spontaneous
  Country: US (occurrence: None)
  Receive Date: 20221004
  Receipt Date: 20221004
  Transmission Date: 20230112
  Serious: No
  Sender: FDA-Public Use
  Company Number: None

PATIENT
  Age: 70 Year
  Sex: Female
  Weight: 106.59 kg

DRUGS (12)
  1. REMDESIVIR [Suspect]
     Active Substance: REMDESIVIR
     Indication: COVID-19
     Dates: start: 20220706, end: 20220708
  2. ALENDRONATE [Concomitant]
     Active Substance: ALENDRONATE SODIUM
  3. CEFUROXIME AXETIL [Concomitant]
     Active Substance: CEFUROXIME AXETIL
  4. CLOPIDOGREL [Concomitant]
     Active Substance: CLOPIDOGREL BISULFATE
  5. ELIQUIS [Concomitant]
     Active Substance: APIXABAN
  6. ISOSORBIDE MONNITRATE ER [Concomitant]
  7. LEVOTHYROXINE [Concomitant]
     Active Substance: LEVOTHYROXINE
  8. METOPROLOL SUCCINATE [Concomitant]
     Active Substance: METOPROLOL SUCCINATE
  9. ROSUVASTATIN [Concomitant]
     Active Substance: ROSUVASTATIN
  10. CALCIUM [Concomitant]
     Active Substance: CALCIUM
  11. CHOLECALCIFEROL [Concomitant]
     Active Substance: CHOLECALCIFEROL
  12. MULTI-VITAMIN [Concomitant]
     Active Substance: .ALPHA.-TOCOPHEROL ACETATE, DL-\ASCORBIC ACID\CYANOCOBALAMIN\FLUORIDE ION\FOLIC ACID\NIACIN\PYRIDOXI

REACTIONS (15)
  - Hot flush [None]
  - Tremor [None]
  - Fatigue [None]
  - Cough [None]
  - Decreased appetite [None]
  - Pollakiuria [None]
  - Weight decreased [None]
  - Pyelonephritis acute [None]
  - Blood creatinine increased [None]
  - Hyponatraemia [None]
  - Haemoglobin decreased [None]
  - Blood albumin decreased [None]
  - White blood cell count increased [None]
  - Liver function test increased [None]
  - Blood alkaline phosphatase increased [None]

NARRATIVE: CASE EVENT DATE: 20220709
